FAERS Safety Report 5717332-7 (Version None)
Quarter: 2008Q2

REPORT INFORMATION
  Report Type: 
  Country: None (occurrence: None)
  Receive Date: 20080424
  Receipt Date: 20080424
  Transmission Date: 20081010
  Serious: Yes (Hospitalization)
  Sender: FDA-Public Use
  Company Number: None

PATIENT
  Age: 64 Year
  Sex: Female

DRUGS (13)
  1. ZYVOX [Suspect]
     Indication: PNEUMONIA STAPHYLOCOCCAL
     Dosage: 600 MG PO PO
     Route: 048
     Dates: start: 20060625, end: 20060711
  2. LISINOPRIL [Concomitant]
  3. ZOCOR [Concomitant]
  4. ZETIA [Concomitant]
  5. SYNTHROID [Concomitant]
  6. SINGULAIR [Concomitant]
  7. ADVAIR HFA [Concomitant]
  8. PROTONIX [Concomitant]
  9. MS CONTIN [Concomitant]
  10. ESTRACE [Concomitant]
  11. CEFEPIME [Concomitant]
  12. ZITHROMAX [Concomitant]
  13. MYCELEX [Concomitant]

REACTIONS (4)
  - CANDIDIASIS [None]
  - DRUG HYPERSENSITIVITY [None]
  - EOSINOPHIL COUNT INCREASED [None]
  - NAUSEA [None]
